FAERS Safety Report 7959003-2 (Version None)
Quarter: 2011Q4

REPORT INFORMATION
  Report Type: 
  Country: None (occurrence: None)
  Receive Date: 20111206
  Receipt Date: 20111125
  Transmission Date: 20120403
  Serious: Yes (Hospitalization)
  Sender: FDA-Public Use
  Company Number: JP-NOVOPROD-338360

PATIENT

DRUGS (12)
  1. VICTOZA [Suspect]
     Indication: TYPE 2 DIABETES MELLITUS
     Dosage: 0.3 MG, QD
     Route: 058
     Dates: start: 20111010
  2. VICTOZA [Suspect]
     Dosage: 0.9 MG, QD
     Route: 058
     Dates: start: 20111024, end: 20111025
  3. NOVORAPID CHU [Concomitant]
     Indication: TYPE 2 DIABETES MELLITUS
     Dosage: 22 U, QD
     Route: 065
     Dates: start: 20100101
  4. LAMISIL [Concomitant]
     Dosage: 125 MG, QD
     Route: 048
     Dates: start: 20111018
  5. LANTUS [Concomitant]
     Dosage: 12 U, QD
     Route: 058
     Dates: start: 20110101, end: 20111023
  6. VICTOZA [Suspect]
     Dosage: 0.6 MG, QD
     Route: 058
     Dates: start: 20111017
  7. CANDESARTAN CILEXETIL [Concomitant]
     Dosage: 8 MG, QD
     Route: 048
     Dates: start: 20111012, end: 20111025
  8. NORVASC [Concomitant]
     Dosage: 5 MG, QD
     Route: 048
     Dates: start: 20111019, end: 20111027
  9. MAGNESIUM SULFATE [Concomitant]
     Dosage: 750 MG, QD
     Route: 048
     Dates: start: 20111013, end: 20111021
  10. EPINASTINE HYDROCHLORIDE [Concomitant]
     Dosage: 20 MG, QD
     Route: 048
     Dates: start: 20110930
  11. PURSENNID                          /00142207/ [Concomitant]
  12. MYSER                              /00115501/ [Concomitant]
     Dosage: /CU

REACTIONS (1)
  - ILEUS PARALYTIC [None]
